FAERS Safety Report 9453661 (Version 1)
Quarter: 2013Q3

REPORT INFORMATION
  Report Type: Spontaneous
  Country: US (occurrence: None)
  Receive Date: 20130809
  Receipt Date: 20130809
  Transmission Date: 20140515
  Serious: Yes (Hospitalization)
  Sender: FDA-Public Use
  Company Number: None

PATIENT
  Sex: 0

DRUGS (1)
  1. K-Y INTENSE AROUSAL [Suspect]

REACTIONS (2)
  - Accidental exposure to product [None]
  - Product packaging issue [None]
